FAERS Safety Report 8212388-4 (Version None)
Quarter: 2012Q1

REPORT INFORMATION
  Report Type: 
  Country: None (occurrence: None)
  Receive Date: 20120315
  Receipt Date: 20120307
  Transmission Date: 20120608
  Serious: Yes (Other)
  Sender: FDA-Public Use
  Company Number: CO-GILEAD-2012-0052158

PATIENT
  Sex: Female

DRUGS (2)
  1. SILDENAFIL [Concomitant]
     Route: 048
  2. AMBRISENTAN [Suspect]
     Indication: PULMONARY HYPERTENSION
     Dosage: 10MG SEE DOSAGE TEXT
     Route: 048

REACTIONS (1)
  - ERYTHEMA [None]
